FAERS Safety Report 8355721-5 (Version None)
Quarter: 2012Q2

REPORT INFORMATION
  Report Type: 
  Country: None (occurrence: None)
  Receive Date: 20120510
  Receipt Date: 20120423
  Transmission Date: 20120825
  Serious: Yes (Other)
  Sender: FDA-Public Use
  Company Number: 2012P1013282

PATIENT
  Sex: Female
  Weight: 63.3675 kg

DRUGS (7)
  1. WARFARIN SODIUM [Suspect]
     Indication: THROMBOSIS
     Dosage: QD;PO
     Route: 048
     Dates: start: 20111125
  2. WARFARIN SODIUM [Suspect]
     Indication: CEREBROVASCULAR ACCIDENT PROPHYLAXIS
     Dosage: QD;PO
     Route: 048
     Dates: start: 20111125
  3. RANITIDINE [Concomitant]
  4. LOSARTAN POTASSIUM [Concomitant]
  5. METFORMIN HCL [Concomitant]
  6. NOVOLOG [Concomitant]
  7. LANTUS [Concomitant]

REACTIONS (3)
  - DYSPNOEA [None]
  - MITRAL VALVE STENOSIS [None]
  - AORTIC VALVE INCOMPETENCE [None]
